FAERS Safety Report 8912757 (Version 1)
Quarter: 2012Q4

REPORT INFORMATION
  Report Type: 
  Country: FR (occurrence: FR)
  Receive Date: 20121116
  Receipt Date: 20121116
  Transmission Date: 20130627
  Serious: Yes (Hospitalization)
  Sender: FDA-Public Use
  Company Number: FR-B.I. PHARMACEUTICALS,INC./RIDGEFIELD-2012-FF-01600FF

PATIENT
  Age: 82 Year
  Sex: Female

DRUGS (2)
  1. PRADAXA [Suspect]
     Indication: ATRIAL FIBRILLATION
     Route: 048
  2. CELECTOL [Concomitant]

REACTIONS (5)
  - Haematoma [Recovered/Resolved]
  - Ankle fracture [Unknown]
  - Fall [Recovered/Resolved]
  - Tremor [Recovered/Resolved]
  - Haemorrhage [Recovered/Resolved]
